FAERS Safety Report 9255934 (Version 3)
Quarter: 2013Q2

REPORT INFORMATION
  Report Type: Spontaneous
  Country: JP (occurrence: JP)
  Receive Date: 20130425
  Receipt Date: 20130626
  Transmission Date: 20140414
  Serious: Yes (Other)
  Sender: FDA-Public Use
  Company Number: JP-OTSUKA-JP-2013-11118

PATIENT
  Age: 77 Year
  Sex: Female
  Weight: 46.9 kg

DRUGS (9)
  1. SAMSCA [Suspect]
     Indication: CARDIAC FAILURE CONGESTIVE
     Dosage: 7.5 MG MILLIGRAM(S), QAM
     Route: 048
     Dates: start: 20130402, end: 20130418
  2. BAYASPIRIN [Concomitant]
     Indication: CARDIAC FAILURE CONGESTIVE
     Dosage: 100 MG MILLIGRAM(S), QD
     Route: 048
  3. LASIX [Concomitant]
     Indication: CARDIAC FAILURE CONGESTIVE
     Dosage: 40 MG MILLIGRAM(S), QD
     Route: 048
  4. ALDACTONE A [Concomitant]
     Indication: CARDIAC FAILURE CONGESTIVE
     Dosage: 25 MG MILLIGRAM(S), QD
     Route: 048
  5. LIPITOR [Concomitant]
     Indication: HYPERLIPIDAEMIA
     Dosage: 5 MG MILLIGRAM(S), QD
     Route: 048
  6. FEBURIC [Concomitant]
     Indication: HYPERURICAEMIA
     Dosage: 20 MG MILLIGRAM(S), QD
     Route: 048
  7. AMLODIN [Concomitant]
     Indication: HYPERTENSION
     Dosage: 5 MG MILLIGRAM(S), BID
     Route: 048
  8. VASOLATOR [Concomitant]
     Indication: CARDIAC FAILURE CONGESTIVE
     Dosage: 27 MG MILLIGRAM(S), QD
     Route: 061
  9. LEVEMIR [Concomitant]
     Indication: DIABETES MELLITUS
     Dosage: 6 IU, QD
     Route: 058

REACTIONS (1)
  - Pancytopenia [Recovering/Resolving]
